FAERS Safety Report 4689956-X (Version None)
Quarter: 2005Q2

REPORT INFORMATION
  Report Type: 
  Country: None (occurrence: None)
  Receive Date: 20050608
  Receipt Date: 20040603
  Transmission Date: 20051028
  Serious: Yes (Other)
  Sender: FDA-Public Use
  Company Number: 354199

PATIENT
  Sex: Female
  Weight: 3.4 kg

DRUGS (3)
  1. ACCUTANE [Suspect]
     Indication: ACNE CYSTIC
     Dates: start: 20020915, end: 20021115
  2. CELEXA [Concomitant]
  3. VITAMIN (VITAMIN NOS) [Concomitant]

REACTIONS (3)
  - LIVE BIRTH [None]
  - NO ADVERSE EFFECT [None]
  - PREGNANCY [None]
